FAERS Safety Report 5751653-7 (Version None)
Quarter: 2008Q2

REPORT INFORMATION
  Report Type: 
  Country: None (occurrence: None)
  Receive Date: 20080528
  Receipt Date: 20080520
  Transmission Date: 20081010
  Serious: Yes (Other)
  Sender: FDA-Public Use
  Company Number: PHRM2008FR01530

PATIENT
  Age: 56 Year
  Sex: Female

DRUGS (1)
  1. FEMARA [Suspect]
     Route: 048

REACTIONS (8)
  - ASTHENIA [None]
  - BLOOD BILIRUBIN INCREASED [None]
  - CYTOLYTIC HEPATITIS [None]
  - GAMMA-GLUTAMYLTRANSFERASE INCREASED [None]
  - JAUNDICE [None]
  - NAUSEA [None]
  - TRANSAMINASES INCREASED [None]
  - VOMITING [None]
